FAERS Safety Report 13958841 (Version 4)
Quarter: 2017Q4

REPORT INFORMATION
  Report Type: Spontaneous
  Country: JP (occurrence: JP)
  Receive Date: 20170911
  Receipt Date: 20171126
  Transmission Date: 20180320
  Serious: Yes (Death, Life-Threatening, Other)
  Sender: FDA-Public Use
  Company Number: JP-MYLANLABS-2017M1055129

PATIENT
  Age: 75 Year
  Sex: Male
  Weight: 48 kg

DRUGS (4)
  1. CARBOPLATIN INJ. 50MG ^NK^ [Suspect]
     Active Substance: CARBOPLATIN
     Indication: SMALL CELL LUNG CANCER EXTENSIVE STAGE
     Dosage: 360 MG, CYCLE
     Route: 041
     Dates: start: 20160112, end: 20160620
  2. ETOPOSIDE. [Suspect]
     Active Substance: ETOPOSIDE
     Indication: SMALL CELL LUNG CANCER EXTENSIVE STAGE
     Dosage: 165 MG, CYCLE
     Route: 041
     Dates: start: 20160112, end: 20160620
  3. CALSED [Suspect]
     Active Substance: AMRUBICIN HYDROCHLORIDE
     Indication: SMALL CELL LUNG CANCER EXTENSIVE STAGE
     Dosage: 58 MG, CYCLE
     Route: 041
     Dates: start: 20160829, end: 20170629
  4. HYCAMTIN [Suspect]
     Active Substance: TOPOTECAN HYDROCHLORIDE
     Indication: SMALL CELL LUNG CANCER EXTENSIVE STAGE
     Dosage: 1.5 MG, CYCLE
     Route: 041
     Dates: start: 20170724, end: 20170728

REACTIONS (1)
  - Acute myeloid leukaemia [Not Recovered/Not Resolved]

NARRATIVE: CASE EVENT DATE: 20170828
